FAERS Safety Report 6579424-2 (Version None)
Quarter: 2010Q1

REPORT INFORMATION
  Report Type: 
  Country: None (occurrence: None)
  Receive Date: 20100212
  Receipt Date: 20100201
  Transmission Date: 20100710
  Serious: Yes (Other)
  Sender: FDA-Public Use
  Company Number: GB-BRISTOL-MYERS SQUIBB COMPANY-14080360

PATIENT

DRUGS (13)
  1. DIDANOSINE [Suspect]
     Indication: ANTIRETROVIRAL THERAPY
  2. STAVUDINE [Suspect]
     Indication: ANTIRETROVIRAL THERAPY
  3. EFAVIRENZ [Suspect]
     Indication: ANTIRETROVIRAL THERAPY
  4. ABACAVIR [Suspect]
     Indication: ANTIRETROVIRAL THERAPY
  5. ZIDOVUDINE [Suspect]
     Indication: ANTIRETROVIRAL THERAPY
  6. LAMIVUDINE [Suspect]
     Indication: ANTIRETROVIRAL THERAPY
  7. NELFINAVIR MESYLATE [Suspect]
     Indication: ANTIRETROVIRAL THERAPY
  8. INDINIVIR SULFATE [Suspect]
     Indication: ANTIRETROVIRAL THERAPY
  9. LOPINAVIR/RITONAVIR [Suspect]
     Indication: ANTIRETROVIRAL THERAPY
  10. SAQUINAVIR [Suspect]
     Indication: ANTIRETROVIRAL THERAPY
  11. NEVIRAPINE [Suspect]
     Indication: ANTIRETROVIRAL THERAPY
  12. ZALCITABINE [Suspect]
     Indication: ANTIRETROVIRAL THERAPY
  13. TENOFOVIR [Suspect]
     Indication: ANTIRETROVIRAL THERAPY

REACTIONS (1)
  - MYOCARDIAL INFARCTION [None]
